FAERS Safety Report 4517547-X (Version None)
Quarter: 2004Q4

REPORT INFORMATION
  Report Type: 
  Country: None (occurrence: None)
  Receive Date: 20041130
  Receipt Date: 20041117
  Transmission Date: 20050328
  Serious: Yes (Hospitalization)
  Sender: FDA-Public Use
  Company Number: 2004AP05957

PATIENT
  Age: 56 Year
  Sex: Male

DRUGS (21)
  1. IRESSA [Suspect]
     Indication: LUNG ADENOCARCINOMA STAGE IV
     Dosage: 250 MG DIALY PO
     Route: 048
     Dates: start: 20041020, end: 20041025
  2. IRESSA [Suspect]
     Indication: NON-SMALL CELL LUNG CANCER
     Dosage: 250 MG DIALY PO
     Route: 048
     Dates: start: 20041020, end: 20041025
  3. IRESSA [Suspect]
     Indication: LUNG ADENOCARCINOMA STAGE IV
     Dosage: 250 MG DAILY PO
     Route: 048
     Dates: start: 20041117, end: 20041118
  4. IRESSA [Suspect]
     Indication: NON-SMALL CELL LUNG CANCER
     Dosage: 250 MG DAILY PO
     Route: 048
     Dates: start: 20041117, end: 20041118
  5. DECADRON [Concomitant]
  6. ZANTAC [Concomitant]
  7. HUSCODE [Concomitant]
  8. LOXONIN [Concomitant]
  9. MUCOSTA [Concomitant]
  10. ISOBIDE [Concomitant]
  11. MUCOSOLVAN [Concomitant]
  12. HOKUNALIN [Concomitant]
  13. DEPAKENE [Concomitant]
  14. OPSO DAINIPPON [Concomitant]
  15. OXYCONTIN [Concomitant]
  16. MAGMITT [Concomitant]
  17. HARNAL [Concomitant]
  18. EXCEGRAN [Concomitant]
  19. CARBOPLATIN [Concomitant]
  20. GEMCITABINE [Concomitant]
  21. RADIATION THERAPY [Concomitant]

REACTIONS (4)
  - DISEASE PROGRESSION [None]
  - EMPHYSEMATOUS BULLA [None]
  - GENERAL PHYSICAL HEALTH DETERIORATION [None]
  - PNEUMOTHORAX [None]
